FAERS Safety Report 6126328-5 (Version None)
Quarter: 2009Q1

REPORT INFORMATION
  Report Type: 
  Country: None (occurrence: None)
  Receive Date: 20090320
  Receipt Date: 20090313
  Transmission Date: 20090719
  Serious: Yes (Hospitalization)
  Sender: FDA-Public Use
  Company Number: US-ELI_LILLY_AND_COMPANY-US200903003374

PATIENT
  Sex: Female

DRUGS (7)
  1. HUMULIN R [Suspect]
  2. HUMULIN N [Suspect]
  3. LANTUS [Concomitant]
  4. PROGRAF [Concomitant]
  5. CELLCEPT [Concomitant]
  6. RAMIPRIL [Concomitant]
  7. LABETALOL HCL [Concomitant]

REACTIONS (6)
  - CONFUSIONAL STATE [None]
  - DIZZINESS [None]
  - NAUSEA [None]
  - RENAL DISORDER [None]
  - RENAL TRANSPLANT [None]
  - VOMITING [None]
